FAERS Safety Report 7412818-1 (Version None)
Quarter: 2011Q2

REPORT INFORMATION
  Report Type: 
  Country: None (occurrence: None)
  Receive Date: 20110413
  Receipt Date: 20110405
  Transmission Date: 20111010
  Serious: Yes (Other)
  Sender: FDA-Public Use
  Company Number: B0710817A

PATIENT
  Age: 14 Year
  Sex: Male
  Weight: 67 kg

DRUGS (2)
  1. ALBUTEROL SULFATE AUTOHALER [Suspect]
     Indication: BRONCHOSPASM
     Route: 042
  2. SERETIDE [Concomitant]
     Route: 055

REACTIONS (5)
  - HYPOKALAEMIA [None]
  - VENTRICULAR EXTRASYSTOLES [None]
  - ACCIDENTAL OVERDOSE [None]
  - HYPERGLYCAEMIA [None]
  - BLOOD LACTIC ACID INCREASED [None]
